FAERS Safety Report 17610846 (Version 1)
Quarter: 2020Q1

REPORT INFORMATION
  Report Type: Spontaneous
  Country: US (occurrence: US)
  Receive Date: 20200330
  Receipt Date: 20200330
  Transmission Date: 20200409
  Serious: No
  Sender: FDA-Public Use
  Company Number: None

PATIENT
  Age: 35 Year
  Sex: Male
  Weight: 88 kg

DRUGS (1)
  1. KETOROLAC TROMETHAMINE (KETOROLAC TROMETHAMINE 30MG/ML INJ, SYRINGE, 1 [Suspect]
     Active Substance: KETOROLAC TROMETHAMINE
     Indication: PAIN
     Dosage: ?          OTHER ROUTE:IV?
     Dates: start: 20180918, end: 20180918

REACTIONS (5)
  - Throat tightness [None]
  - Palpitations [None]
  - Dyspnoea [None]
  - Anaphylactic reaction [None]
  - Headache [None]

NARRATIVE: CASE EVENT DATE: 20180918
